FAERS Safety Report 4353838-3 (Version None)
Quarter: 2004Q2

REPORT INFORMATION
  Report Type: 
  Country: None (occurrence: None)
  Receive Date: 20040430
  Receipt Date: 20040419
  Transmission Date: 20050107
  Serious: Yes (Death, Life-Threatening, Hospitalization)
  Sender: FDA-Public Use
  Company Number: 03P-028-0221417-00

PATIENT
  Age: 79 Year
  Sex: Male
  Weight: 84.4 kg

DRUGS (14)
  1. HUMIRA [Suspect]
     Indication: RHEUMATOID ARTHRITIS
     Dosage: 1 IN 2 WK, SUBCUTANEOUS
     Route: 058
     Dates: start: 20020215, end: 20030605
  2. CELECOXIB [Concomitant]
  3. PREDNISONE [Concomitant]
  4. ACETAMINOPHEN [Concomitant]
  5. COMBIVENT [Concomitant]
  6. METRONIDAZOL GEL 0.75% [Concomitant]
  7. BECLOMETHASONE DIPROPIONATE [Concomitant]
  8. TERAZOSIN HCL [Concomitant]
  9. HYDROCHLOROTHIAZIDE [Concomitant]
  10. CALCIUM [Concomitant]
  11. ERGOCALCIFEROL [Concomitant]
  12. MULTI-VITAMINS [Concomitant]
  13. SALMON OIL [Concomitant]
  14. FOLIC ACID [Concomitant]

REACTIONS (15)
  - ALANINE AMINOTRANSFERASE INCREASED [None]
  - ARRHYTHMIA [None]
  - BLOOD ALKALINE PHOSPHATASE INCREASED [None]
  - BLOOD PRESSURE SYSTOLIC INCREASED [None]
  - COLON CANCER METASTATIC [None]
  - DIARRHOEA [None]
  - GAMMA-GLUTAMYLTRANSFERASE INCREASED [None]
  - JAUNDICE [None]
  - JOINT CONTRACTURE [None]
  - LIVER FUNCTION TEST ABNORMAL [None]
  - METASTASES TO LIVER [None]
  - PNEUMONIA [None]
  - POST PROCEDURAL COMPLICATION [None]
  - PYREXIA [None]
  - RESPIRATORY FAILURE [None]
